FAERS Safety Report 14614950 (Version 4)
Quarter: 2018Q1

REPORT INFORMATION
  Report Type: Spontaneous
  Country: US (occurrence: US)
  Receive Date: 20180308
  Receipt Date: 20180323
  Transmission Date: 20180509
  Serious: Yes (Life-Threatening, Hospitalization, Other)
  Sender: FDA-Public Use
  Company Number: US-CELGENEUS-USA-20180301676

PATIENT
  Age: 76 Year
  Sex: Female

DRUGS (2)
  1. REVLIMID [Suspect]
     Active Substance: LENALIDOMIDE
     Indication: PLASMA CELL MYELOMA
  2. REVLIMID [Suspect]
     Active Substance: LENALIDOMIDE
     Indication: PLASMA CELL MYELOMA
     Dosage: 5 MILLIGRAM
     Route: 048
     Dates: start: 20180212

REACTIONS (5)
  - Unresponsive to stimuli [Unknown]
  - Adverse drug reaction [Unknown]
  - Red blood cell count decreased [Not Recovered/Not Resolved]
  - Anaemia [Unknown]
  - Cardiac disorder [Not Recovered/Not Resolved]

NARRATIVE: CASE EVENT DATE: 20180228
